FAERS Safety Report 6203720-1 (Version None)
Quarter: 2009Q2

REPORT INFORMATION
  Report Type: 
  Country: None (occurrence: None)
  Receive Date: 20090518
  Receipt Date: 20090219
  Transmission Date: 20091009
  Serious: No
  Sender: FDA-Public Use
  Company Number: WAES 0902USA03546

PATIENT

DRUGS (1)
  1. JANUVIA [Suspect]
     Dosage: 50 MG/DAILY/PO : 100 MG/DAILY/PO
     Route: 048

REACTIONS (1)
  - HYPOGLYCAEMIA [None]
